FAERS Safety Report 23697251 (Version 1)
Quarter: 2024Q2

REPORT INFORMATION
  Report Type: Other
  Country: US (occurrence: US)
  Receive Date: 20240402
  Receipt Date: 20240402
  Transmission Date: 20240716
  Serious: Yes (Life-Threatening, Hospitalization, Other)
  Sender: FDA-Public Use
  Company Number: US-B.Braun Medical Inc.-2155120

PATIENT
  Age: 73 Year
  Sex: Male
  Weight: 55 kg

DRUGS (18)
  1. CEFEPIME HYDROCHLORIDE [Suspect]
     Active Substance: CEFEPIME HYDROCHLORIDE
     Indication: Sepsis
  2. LEVOFLOXACIN [Suspect]
     Active Substance: LEVOFLOXACIN
  3. VANCOMYCIN [Concomitant]
     Active Substance: VANCOMYCIN
  4. PEMBROLIZUMAB [Concomitant]
     Active Substance: PEMBROLIZUMAB
  5. PACLITAXEL [Concomitant]
     Active Substance: PACLITAXEL
  6. CARBOPLATIN [Concomitant]
     Active Substance: CARBOPLATIN
  7. CYANOCOBALAMIN [Concomitant]
     Active Substance: CYANOCOBALAMIN
  8. ASPIRIN [Concomitant]
     Active Substance: ASPIRIN
  9. TIOTROPIUM [Concomitant]
     Active Substance: TIOTROPIUM
  10. PROCHLORPERAZINE [Concomitant]
     Active Substance: PROCHLORPERAZINE
  11. ONDANSETRON [Concomitant]
     Active Substance: ONDANSETRON
  12. HYDROXYZINE [Concomitant]
     Active Substance: HYDROXYZINE HYDROCHLORIDE
  13. GABAPENTIN [Concomitant]
     Active Substance: GABAPENTIN
  14. DEXAMETHASONE [Concomitant]
     Active Substance: DEXAMETHASONE
  15. DIPHENHYDRAMINE HYDROCHLORIDE\LIDOCAINE HYDROCHLORIDE\NYSTATIN [Concomitant]
     Active Substance: DIPHENHYDRAMINE HYDROCHLORIDE\LIDOCAINE HYDROCHLORIDE\NYSTATIN
  16. Albuterol rescue inhaler [Concomitant]
  17. CLINDAMYCIN [Suspect]
     Active Substance: CLINDAMYCIN
  18. AMOXICILLIN\CLAVULANATE POTASSIUM [Suspect]
     Active Substance: AMOXICILLIN\CLAVULANATE POTASSIUM

REACTIONS (2)
  - Neurotoxicity [Unknown]
  - Drug ineffective for unapproved indication [Unknown]
